FAERS Safety Report 4367637-X (Version None)
Quarter: 2004Q2

REPORT INFORMATION
  Report Type: 
  Country: None (occurrence: None)
  Receive Date: 20040601
  Receipt Date: 20040510
  Transmission Date: 20050107
  Serious: Yes (Life-Threatening)
  Sender: FDA-Public Use
  Company Number: JP-MERCK-0405USA00853

PATIENT
  Age: 81 Year
  Sex: Female

DRUGS (8)
  1. [THERAPY UNSPECIFIED] [Concomitant]
     Indication: MEDICAL DIET
     Route: 065
     Dates: start: 20040403, end: 20040406
  2. [THERAPY UNSPECIFIED] [Concomitant]
     Route: 065
     Dates: start: 20040407, end: 20040420
  3. [THERAPY UNSPECIFIED] [Concomitant]
     Indication: DEHYDRATION
     Route: 065
     Dates: start: 20040414, end: 20040420
  4. CEFOTIAM HYDROCHLORIDE [Concomitant]
     Indication: PNEUMONIA
     Route: 065
     Dates: start: 20040328, end: 20040407
  5. CEFOTIAM HYDROCHLORIDE [Concomitant]
     Route: 065
     Dates: start: 20040410, end: 20040413
  6. PRIMAXIN [Suspect]
     Indication: PNEUMONIA
     Route: 042
     Dates: start: 20040414, end: 20040420
  7. GLIMEPIRIDE [Concomitant]
     Indication: DIABETES MELLITUS
     Route: 048
     Dates: start: 20040413, end: 20040420
  8. TULOBUTEROL [Concomitant]
     Indication: BRONCHIECTASIS
     Route: 065
     Dates: start: 20040407

REACTIONS (1)
  - HYPERNATRAEMIA [None]
